FAERS Safety Report 5662842-4 (Version None)
Quarter: 2008Q1

REPORT INFORMATION
  Report Type: 
  Country: None (occurrence: None)
  Receive Date: 20080313
  Receipt Date: 20070820
  Transmission Date: 20080703
  Serious: Yes (Hospitalization)
  Sender: FDA-Public Use
  Company Number: FR-AVENTIS-200711750FR

PATIENT
  Age: 26 Year
  Sex: Female

DRUGS (2)
  1. CLOMID [Suspect]
     Indication: OVULATION INDUCTION
     Route: 048
     Dates: start: 20060101
  2. FOSTIMON [Suspect]
     Indication: DRUG USE FOR UNKNOWN INDICATION
     Route: 058

REACTIONS (2)
  - MYDRIASIS [None]
  - VISION BLURRED [None]
